FAERS Safety Report 9432683 (Version 1)
Quarter: 2013Q3

REPORT INFORMATION
  Report Type: Spontaneous
  Country: CA (occurrence: CA)
  Receive Date: 20130731
  Receipt Date: 20130731
  Transmission Date: 20140515
  Serious: Yes (Hospitalization, Other)
  Sender: FDA-Public Use
  Company Number: CA-AMGEN-CANSP2013052787

PATIENT
  Age: 61 Year
  Sex: Female

DRUGS (1)
  1. XGEVA [Suspect]
     Indication: THYROID CANCER
     Dosage: 120 MG/1.7ML
     Route: 065
     Dates: start: 20120330

REACTIONS (3)
  - Thyroid operation [Unknown]
  - Tracheostomy [Unknown]
  - Dyspnoea [Unknown]
